FAERS Safety Report 16786926 (Version 5)
Quarter: 2019Q4

REPORT INFORMATION
  Report Type: Spontaneous
  Country: FR (occurrence: FR)
  Receive Date: 20190909
  Receipt Date: 20191031
  Transmission Date: 20200122
  Serious: Yes (Hospitalization, Other)
  Sender: FDA-Public Use
  Company Number: FR-ASTRAZENECA-2019SF27566

PATIENT
  Age: 60 Year
  Sex: Male

DRUGS (16)
  1. RHINOCORT [Suspect]
     Active Substance: BUDESONIDE
     Indication: SINUSITIS
     Route: 045
     Dates: start: 20061204
  2. BECOTIDE [Suspect]
     Active Substance: BECLOMETHASONE DIPROPIONATE
     Indication: SINUSITIS
     Route: 065
     Dates: start: 20030225
  3. AUGMENTIN [Concomitant]
     Active Substance: AMOXICILLIN\CLAVULANATE POTASSIUM
     Indication: SINUSITIS
     Dates: start: 20030225
  4. PYOSTACINE [Concomitant]
     Active Substance: PRISTINAMYCIN
     Indication: SINUSITIS
     Dates: start: 20030204
  5. RHINOCORT [Suspect]
     Active Substance: BUDESONIDE
     Indication: SINUSITIS
     Route: 045
     Dates: start: 20160223
  6. AUGMENTIN [Concomitant]
     Active Substance: AMOXICILLIN\CLAVULANATE POTASSIUM
     Indication: SINUSITIS
     Dates: start: 20030311
  7. PYOSTACINE [Concomitant]
     Active Substance: PRISTINAMYCIN
     Indication: SINUSITIS
     Dates: start: 20030114
  8. SOLUPRED (PREDNISOLONE SODIUM SULFOBENZOATE) [Suspect]
     Active Substance: PREDNISOLONE SODIUM METAZOATE
     Indication: SINUSITIS
     Route: 065
     Dates: start: 20020624
  9. AUGMENTIN [Concomitant]
     Active Substance: AMOXICILLIN\CLAVULANATE POTASSIUM
     Indication: SINUSITIS
     Dates: start: 20020624
  10. BECOTIDE [Suspect]
     Active Substance: BECLOMETHASONE DIPROPIONATE
     Indication: SINUSITIS
     Route: 065
     Dates: start: 20020319
  11. MEDROL [Suspect]
     Active Substance: METHYLPREDNISOLONE
     Indication: SINUSITIS
     Route: 065
     Dates: start: 20030204
  12. SOLUPRED (PREDNISOLONE SODIUM SULFOBENZOATE) [Suspect]
     Active Substance: PREDNISOLONE SODIUM METAZOATE
     Indication: SINUSITIS
     Route: 065
     Dates: start: 20030204
  13. RHINOCORT [Suspect]
     Active Substance: BUDESONIDE
     Indication: SINUSITIS
     Route: 045
     Dates: start: 20031201
  14. RHINOCORT [Suspect]
     Active Substance: BUDESONIDE
     Indication: SINUSITIS
     Dosage: 2 SPRAYS PER DAY
     Route: 045
     Dates: start: 20140225
  15. MEDROL [Suspect]
     Active Substance: METHYLPREDNISOLONE
     Indication: SINUSITIS
     Route: 065
     Dates: start: 20030311
  16. AUGMENTIN [Concomitant]
     Active Substance: AMOXICILLIN\CLAVULANATE POTASSIUM
     Indication: SINUSITIS
     Dates: start: 20030213

REACTIONS (4)
  - Aortic valve incompetence [Unknown]
  - Intentional product misuse [Unknown]
  - Off label use [Unknown]
  - Osteonecrosis [Unknown]

NARRATIVE: CASE EVENT DATE: 2016
